FAERS Safety Report 10601545 (Version 2)
Quarter: 2014Q4

REPORT INFORMATION
  Report Type: Spontaneous
  Country: GR (occurrence: GR)
  Receive Date: 20141124
  Receipt Date: 20141216
  Transmission Date: 20150529
  Serious: Yes (Hospitalization, Other)
  Sender: FDA-Public Use
  Company Number: GR-NOVOPROD-429799

PATIENT
  Sex: Female
  Weight: 1.48 kg

DRUGS (2)
  1. PROTAPHANE [Suspect]
     Active Substance: INSULIN HUMAN
     Dosage: 11 IU, QD
     Route: 065
     Dates: end: 20140729
  2. PROTAPHANE [Suspect]
     Active Substance: INSULIN HUMAN
     Indication: GESTATIONAL DIABETES
     Dosage: 6 IU, QD
     Route: 065
     Dates: start: 20140701

REACTIONS (3)
  - Low birth weight baby [Unknown]
  - Premature baby [Recovered/Resolved]
  - Foetal exposure during pregnancy [Recovered/Resolved]

NARRATIVE: CASE EVENT DATE: 20140701
